FAERS Safety Report 9031149 (Version 1)
Quarter: 2013Q1

REPORT INFORMATION
  Report Type: Spontaneous
  Country: US (occurrence: US)
  Receive Date: 20130123
  Receipt Date: 20130123
  Transmission Date: 20140127
  Serious: Yes (Other)
  Sender: FDA-Public Use
  Company Number: US-AMGEN-USASP2013001069

PATIENT
  Age: 81 Year
  Sex: Female

DRUGS (13)
  1. PROLIA [Suspect]
     Indication: PRODUCT USED FOR UNKNOWN INDICATION
     Dosage: UNK
     Dates: start: 20111214
  2. KEFLEX                             /00145501/ [Concomitant]
  3. SPIRIVA [Concomitant]
  4. ELMIRON [Concomitant]
  5. PREVACID [Concomitant]
  6. ATENOLOL [Concomitant]
  7. LEVOXYL [Concomitant]
  8. NORVASC [Concomitant]
  9. LASIX                              /00032601/ [Concomitant]
  10. CALCIUM WITH VITAMIN D             /00944201/ [Concomitant]
  11. VITAMIN C                          /00008001/ [Concomitant]
  12. CENTRUM SILVER                     /07422601/ [Concomitant]
  13. RENVELA [Concomitant]

REACTIONS (7)
  - Macular degeneration [Unknown]
  - Tooth extraction [Unknown]
  - Device failure [Unknown]
  - Cataract [Unknown]
  - Glaucoma [Unknown]
  - Neck pain [Recovered/Resolved]
  - Laboratory test abnormal [Unknown]
